FAERS Safety Report 12907496 (Version 3)
Quarter: 2017Q1

REPORT INFORMATION
  Report Type: Report from Study
  Country: GB (occurrence: GB)
  Receive Date: 20161103
  Receipt Date: 20170327
  Transmission Date: 20170428
  Serious: Yes (Death, Hospitalization, Other)
  Sender: FDA-Public Use
  Company Number: GB-AMGEN-GBRSL2016116529

PATIENT
  Age: 89 Year
  Sex: Female
  Weight: 64.7 kg

DRUGS (1)
  1. PROLIA [Suspect]
     Active Substance: DENOSUMAB
     Indication: OSTEOPOROSIS POSTMENOPAUSAL
     Dosage: 60 MG, Q6MO
     Route: 058

REACTIONS (4)
  - Pneumonia [Fatal]
  - Circulatory collapse [Unknown]
  - Hepatobiliary infection [Unknown]
  - Abdominal pain [Unknown]
